FAERS Safety Report 8312932-2 (Version None)
Quarter: 2012Q2

REPORT INFORMATION
  Report Type: 
  Country: None (occurrence: None)
  Receive Date: 20120424
  Receipt Date: 20120418
  Transmission Date: 20120825
  Serious: Yes (Other)
  Sender: FDA-Public Use
  Company Number: CIP-2012-00116

PATIENT
  Age: 69 Year
  Sex: Male
  Weight: 50 kg

DRUGS (13)
  1. RANITIDINE HYDROCHLORIDE [Concomitant]
  2. METOPROLOL TARTRATE [Concomitant]
  3. CARBOPLATIN [Suspect]
     Indication: SMALL CELL LUNG CANCER STAGE UNSPECIFIED
     Dosage: (370 MG,DAY 1, OVER 30 MINUTES),INFUSION
  4. DIPHENHYDRAMINE HCL [Concomitant]
  5. DOCUSATE (DOCUSATE) [Concomitant]
  6. DEXAMETHASONE [Concomitant]
  7. IPRATROPIUM BROMIDE [Concomitant]
  8. ASPIRIN [Concomitant]
  9. OXYCODONE HCL [Concomitant]
  10. PANTOPRAZOLE [Concomitant]
  11. ONDANSETRON [Concomitant]
  12. ETOPOSIDE [Concomitant]
  13. ALLOPURINOL [Concomitant]

REACTIONS (8)
  - ATRIAL FLUTTER [None]
  - TACHYCARDIA [None]
  - DIZZINESS [None]
  - ARRHYTHMIA [None]
  - WHITE BLOOD CELL COUNT DECREASED [None]
  - BLOOD SODIUM DECREASED [None]
  - HYPOTENSION [None]
  - DYSPNOEA [None]
